FAERS Safety Report 8106566-2 (Version None)
Quarter: 2011Q4

REPORT INFORMATION
  Report Type: 
  Country: None (occurrence: None)
  Receive Date: 20111222
  Receipt Date: 20111118
  Transmission Date: 20120403
  Serious: Yes (Hospitalization, Other)
  Sender: FDA-Public Use
  Company Number: UTC-012387

PATIENT
  Age: 69 Year
  Sex: Female
  Weight: 65.9 kg

DRUGS (1)
  1. TYVASO [Suspect]
     Indication: COR PULMONALE CHRONIC
     Dosage: 18-54 MCG (4 IN 1 D),INHALATION
     Route: 055
     Dates: start: 20110830

REACTIONS (3)
  - PAIN [None]
  - SKIN INFECTION [None]
  - SQUAMOUS CELL CARCINOMA [None]
